FAERS Safety Report 8020724-7 (Version None)
Quarter: 2012Q1

REPORT INFORMATION
  Report Type: 
  Country: None (occurrence: None)
  Receive Date: 20120104
  Receipt Date: 20111230
  Transmission Date: 20120608
  Serious: Yes (Other)
  Sender: FDA-Public Use
  Company Number: US-BRISTOL-MYERS SQUIBB COMPANY-16323842

PATIENT
  Sex: Male

DRUGS (1)
  1. METFORMIN HCL [Suspect]

REACTIONS (1)
  - CARDIAC PACEMAKER INSERTION [None]
